FAERS Safety Report 7653919-2 (Version None)
Quarter: 2011Q3

REPORT INFORMATION
  Report Type: 
  Country: None (occurrence: None)
  Receive Date: 20110803
  Receipt Date: 20110801
  Transmission Date: 20111222
  Serious: Yes (Hospitalization, Other)
  Sender: FDA-Public Use
  Company Number: US-ELI_LILLY_AND_COMPANY-US201002003771

PATIENT
  Sex: Female
  Weight: 142.86 kg

DRUGS (8)
  1. BYETTA [Suspect]
     Dosage: 5 UG, BID
     Route: 058
     Dates: start: 20080110, end: 20090716
  2. LANTUS [Concomitant]
     Indication: DIABETES MELLITUS
     Dosage: 50 U, BID
     Route: 058
  3. LEVOTHYROXINE SODIUM [Concomitant]
     Dosage: 0.125 MG, QD
     Route: 048
  4. LIPITOR [Concomitant]
     Dosage: 10 MG, QD
     Route: 048
  5. BYETTA [Suspect]
     Dosage: 10 UG, BID
     Route: 058
  6. LASIX [Concomitant]
     Indication: CARDIAC FAILURE CONGESTIVE
     Dosage: 40 MG, BID
     Route: 048
  7. TYLENOL                                 /SCH/ [Concomitant]
     Indication: HEADACHE
  8. ENALAPRIL MALEATE [Concomitant]
     Dosage: 20 MG, BID
     Route: 048

REACTIONS (5)
  - RENAL FAILURE [None]
  - CLOSTRIDIAL INFECTION [None]
  - OFF LABEL USE [None]
  - PANCREATITIS [None]
  - GASTRIC DISORDER [None]
